FAERS Safety Report 5889009-9 (Version None)
Quarter: 2008Q3

REPORT INFORMATION
  Report Type: 
  Country: None (occurrence: None)
  Receive Date: 20080916
  Receipt Date: 20080916
  Transmission Date: 20090109
  Serious: Yes (Other)
  Sender: FDA-Public Use
  Company Number: None

PATIENT
  Sex: Male
  Weight: 42.6381 kg

DRUGS (1)
  1. VYVANSE [Suspect]
     Indication: ATTENTION DEFICIT/HYPERACTIVITY DISORDER
     Dosage: 20MG  ONCE DAILY (AM) ORAL
     Route: 048
     Dates: start: 20080801, end: 20080901

REACTIONS (5)
  - ABNORMAL BEHAVIOUR [None]
  - CONSTIPATION [None]
  - FEELING ABNORMAL [None]
  - PRURITUS [None]
  - TRICHOTILLOMANIA [None]
